FAERS Safety Report 8806576 (Version 1)
Quarter: 2012Q4

REPORT INFORMATION
  Report Type: 
  Country: US (occurrence: US)
  Receive Date: 20120925
  Receipt Date: 20120925
  Transmission Date: 20130627
  Serious: No
  Sender: FDA-Public Use
  Company Number: US-JNJFOC-20120905374

PATIENT
  Sex: Female

DRUGS (6)
  1. SANDOZ FENTANYL TRANSDERMAL SYSTEM [Suspect]
     Indication: BACK PAIN
     Route: 062
     Dates: start: 201208
  2. UNSPECIFIED FENTANYL TRANSDERMAL SYSTEM [Suspect]
     Indication: BACK PAIN
     Route: 062
     Dates: start: 2009, end: 201208
  3. TRAZODONE [Concomitant]
     Indication: INSOMNIA
     Route: 048
  4. CYMBALTA [Concomitant]
     Indication: DEPRESSION
     Route: 048
     Dates: start: 2004
  5. ANTI-INFLAMMATORY [Concomitant]
     Indication: MUSCULOSKELETAL STIFFNESS
     Route: 048
  6. ANTI-INFLAMMATORY [Concomitant]
     Indication: JOINT SWELLING
     Route: 048

REACTIONS (8)
  - Drug administered at inappropriate site [Not Recovered/Not Resolved]
  - Wrong technique in drug usage process [Not Recovered/Not Resolved]
  - Wrong technique in drug usage process [Not Recovered/Not Resolved]
  - Application site rash [Recovered/Resolved]
  - Back pain [Recovered/Resolved]
  - Application site erythema [Not Recovered/Not Resolved]
  - Product quality issue [Unknown]
  - Product quality issue [Unknown]
